FAERS Safety Report 5862310-0 (Version None)
Quarter: 2008Q3

REPORT INFORMATION
  Report Type: 
  Country: None (occurrence: None)
  Receive Date: 20080828
  Receipt Date: 20080728
  Transmission Date: 20090109
  Serious: No
  Sender: FDA-Public Use
  Company Number: US-BAYER-200824371NA

PATIENT
  Age: 19 Year
  Sex: Female
  Weight: 70 kg

DRUGS (2)
  1. MIRENA [Suspect]
     Indication: CONTRACEPTION
     Route: 015
     Dates: start: 20071220, end: 20080215
  2. MIRENA [Suspect]
     Route: 015
     Dates: start: 20080320

REACTIONS (2)
  - IUCD COMPLICATION [None]
  - SMEAR CERVIX ABNORMAL [None]
